FAERS Safety Report 23674536 (Version 1)
Quarter: 2024Q1

REPORT INFORMATION
  Report Type: Spontaneous
  Country: US (occurrence: US)
  Receive Date: 20240326
  Receipt Date: 20240326
  Transmission Date: 20240410
  Serious: Yes (Hospitalization, Other)
  Sender: FDA-Public Use
  Company Number: US-SUN PHARMACEUTICAL INDUSTRIES LTD-2024R1-438041

PATIENT
  Age: 31 Year
  Sex: Female

DRUGS (4)
  1. EPINEPHRINE [Suspect]
     Active Substance: EPINEPHRINE
     Indication: Hypotension
     Dosage: 10 MICROGRAM/MIN
     Route: 064
  2. METOPROLOL SUCCINATE [Suspect]
     Active Substance: METOPROLOL SUCCINATE
     Indication: Mitral valve stenosis
     Dosage: 25 MILLIGRAM
     Route: 064
  3. FUROSEMIDE [Suspect]
     Active Substance: FUROSEMIDE
     Indication: Mitral valve stenosis
     Dosage: 20 MILLIGRAM
     Route: 064
  4. VASOPRESSIN [Suspect]
     Active Substance: VASOPRESSIN
     Indication: Hypotension
     Dosage: 4 UNITS/H
     Route: 064

REACTIONS (4)
  - Exposure during pregnancy [Unknown]
  - Placenta accreta [Unknown]
  - Premature delivery [Unknown]
  - Mitral valve stenosis [Unknown]
